FAERS Safety Report 8335156-1 (Version None)
Quarter: 2012Q2

REPORT INFORMATION
  Report Type: 
  Country: None (occurrence: None)
  Receive Date: 20120503
  Receipt Date: 20120424
  Transmission Date: 20120825
  Serious: Yes (Hospitalization, Other)
  Sender: FDA-Public Use
  Company Number: US-ABBOTT-12P-163-0926507-00

PATIENT
  Sex: Female
  Weight: 85.806 kg

DRUGS (5)
  1. HUMIRA [Suspect]
     Indication: INTESTINAL FISTULA
  2. PENTAZA [Concomitant]
     Indication: CROHN'S DISEASE
  3. FLUID [Suspect]
     Indication: POSTOPERATIVE CARE
  4. HUMIRA [Suspect]
     Indication: CROHN'S DISEASE
     Dates: start: 20080501
  5. FLAX SEED OIL [Concomitant]
     Indication: MEDICAL DIET

REACTIONS (5)
  - CARDIAC FAILURE CONGESTIVE [None]
  - VAGINAL HAEMORRHAGE [None]
  - ENDOMETRIAL CANCER [None]
  - VAGINAL CANCER [None]
  - FLUID OVERLOAD [None]
